FAERS Safety Report 21612508 (Version 1)
Quarter: 2022Q4

REPORT INFORMATION
  Report Type: Spontaneous
  Country: FR (occurrence: FR)
  Receive Date: 20221118
  Receipt Date: 20221118
  Transmission Date: 20230113
  Serious: Yes (Other)
  Sender: FDA-Public Use
  Company Number: None

PATIENT
  Age: 57 Year
  Sex: Female
  Weight: 76 kg

DRUGS (14)
  1. OXALIPLATIN [Suspect]
     Active Substance: OXALIPLATIN
     Indication: Rectal adenocarcinoma
     Dosage: UNIT DOSE : 150 MG, FREQUENCY TIME : 1 TOTAL, DURATION : 1 DAYS
     Route: 065
     Dates: start: 20221005, end: 20221005
  2. OXALIPLATIN [Suspect]
     Active Substance: OXALIPLATIN
     Dosage: UNIT DOSE : 150 MG, FREQUENCY TIME : 1 TOTAL, DURATION : 1 DAYS
     Route: 065
     Dates: start: 20220921, end: 20220921
  3. FLUOROURACIL [Suspect]
     Active Substance: FLUOROURACIL
     Indication: Rectal adenocarcinoma
     Dosage: DOSE CONCESSION 30% INFUSER OVER 48 HOURS, UNIT DOSE : 2950 MG, FREQUENCY TIME : 1 TOTAL, DURATION :
     Route: 065
     Dates: start: 20221025, end: 20221027
  4. FLUOROURACIL [Suspect]
     Active Substance: FLUOROURACIL
     Dosage: DOSE CONCESSION 30%?INFUSER OVER 48 HOURS?UNIT DOSE : 2950 MG, FREQUENCY TIME : 1 TOTAL, DURATION :
     Route: 065
     Dates: start: 20221005, end: 20221007
  5. FLUOROURACIL [Suspect]
     Active Substance: FLUOROURACIL
     Dosage: DOSE CONCESSION 30%?INFUSER OVER 48 HOURS?UNIT DOSE : 2950 MG, FREQUENCY TIME : 1 TOTAL, DURATION :
     Route: 065
     Dates: start: 20220921, end: 20220923
  6. IRINOTECAN [Suspect]
     Active Substance: IRINOTECAN
     Indication: Rectal adenocarcinoma
     Dosage: UNIT DOSE : 240 MG, FREQUENCY TIME : 1 TOTAL, DURATION : 1 DAYS
     Route: 065
     Dates: start: 20220921, end: 20220921
  7. IRINOTECAN [Suspect]
     Active Substance: IRINOTECAN
     Dosage: UNIT DOSE : 240 MG, FREQUENCY TIME : 1 TOTAL, DURATION : 1 DAYS
     Route: 065
     Dates: start: 20221025, end: 20221025
  8. IRINOTECAN [Suspect]
     Active Substance: IRINOTECAN
     Dosage: UNIT DOSE : 240 MG, FREQUENCY TIME : 1 TOTAL, DURATION : 1 DAYS
     Route: 065
     Dates: start: 20221005, end: 20221005
  9. FILGRASTIM [Suspect]
     Active Substance: FILGRASTIM
     Indication: Rectal adenocarcinoma
     Dosage: 30 MU/0.5 ML, SOLUTION FOR INJECTION OR INFUSION IN PRE-FILLED SYRINGE, UNIT DOSE : 1 DOSAGE FORMS,
     Route: 065
     Dates: start: 20220924, end: 20220927
  10. FILGRASTIM [Suspect]
     Active Substance: FILGRASTIM
     Dosage: 30 MU/0.5 ML, SOLUTION FOR INJECTION OR INFUSION IN PRE-FILLED SYRINGE, UNIT DOSE : 1 DOSAGE FORMS,
     Route: 065
     Dates: start: 20221006, end: 20221008
  11. DOLIPRANE [Concomitant]
     Active Substance: ACETAMINOPHEN
     Indication: Pain
     Dosage: 4 GRAM DAILY; 1 G EVERY 6 HOURS IF PAIN, FORM STRENGTH : 1000 MG, UNIT DOSE : 1 G, THERAPY START DAT
     Route: 065
  12. LEVOLEUCOVORIN CALCIUM [Concomitant]
     Active Substance: LEVOLEUCOVORIN CALCIUM
     Indication: Rectal adenocarcinoma
     Dosage: UNIT DOSE : 350 MG, FREQUENCY TIME : 1 TOTAL, DURATION : 1 DAYS
     Route: 065
     Dates: start: 20220921, end: 20220921
  13. LEVOLEUCOVORIN CALCIUM [Concomitant]
     Active Substance: LEVOLEUCOVORIN CALCIUM
     Dosage: UNIT DOSE : 350 MG, FREQUENCY TIME : 1 TOTAL, DURATION : 1 DAYS
     Route: 065
     Dates: start: 20221025, end: 20221025
  14. LEVOLEUCOVORIN CALCIUM [Concomitant]
     Active Substance: LEVOLEUCOVORIN CALCIUM
     Dosage: UNIT DOSE : 350 MG, FREQUENCY TIME : 1 TOTAL, DURATION : 1 DAYS
     Route: 065
     Dates: start: 20221005, end: 20221005

REACTIONS (1)
  - Hepatic cytolysis [Recovering/Resolving]

NARRATIVE: CASE EVENT DATE: 20221004
